FAERS Safety Report 13750633 (Version 3)
Quarter: 2017Q3

REPORT INFORMATION
  Report Type: Spontaneous
  Country: JP (occurrence: JP)
  Receive Date: 20170713
  Receipt Date: 20170814
  Transmission Date: 20171127
  Serious: Yes (Other)
  Sender: FDA-Public Use
  Company Number: JP-009507513-1707JPN000211J

PATIENT
  Age: 68 Year
  Sex: Male

DRUGS (2)
  1. THERAPY UNSPECIFIED [Suspect]
     Active Substance: UNSPECIFIED INGREDIENT
     Dosage: UNK
     Route: 041
     Dates: start: 20170418
  2. OPDIVO [Suspect]
     Active Substance: NIVOLUMAB
     Dosage: UNK
     Route: 041
     Dates: start: 20170418

REACTIONS (2)
  - Malignant neoplasm progression [Unknown]
  - Pericarditis [Unknown]

NARRATIVE: CASE EVENT DATE: 201706
